FAERS Safety Report 5950919-5 (Version None)
Quarter: 2008Q4

REPORT INFORMATION
  Report Type: 
  Country: None (occurrence: None)
  Receive Date: 20081110
  Receipt Date: 20081027
  Transmission Date: 20090506
  Serious: Yes (Hospitalization)
  Sender: FDA-Public Use
  Company Number: 2008SP002665

PATIENT
  Age: 77 Year
  Sex: Male

DRUGS (6)
  1. BROVANA [Suspect]
     Indication: PULMONARY FIBROSIS
     Dosage: 15 UG/2ML;BID;INHALATION
     Route: 055
     Dates: start: 20080101, end: 20081024
  2. PULMICORT-100 [Concomitant]
  3. OTHER RESPIRATORY SYSTEM PRODUCTS [Concomitant]
  4. COUMADIN [Concomitant]
  5. DUONEB [Concomitant]
  6. . [Concomitant]

REACTIONS (5)
  - CONDITION AGGRAVATED [None]
  - DRUG INEFFECTIVE [None]
  - DYSPNOEA [None]
  - NERVOUSNESS [None]
  - PULMONARY EMBOLISM [None]
